FAERS Safety Report 5326595-1 (Version None)
Quarter: 2007Q2

REPORT INFORMATION
  Report Type: 
  Country: None (occurrence: None)
  Receive Date: 20070516
  Receipt Date: 20070507
  Transmission Date: 20071010
  Serious: Yes (Other)
  Sender: FDA-Public Use
  Company Number: US-PFIZER INC-2005158509

PATIENT
  Sex: Female
  Weight: 59.9 kg

DRUGS (4)
  1. LIPITOR [Suspect]
     Indication: BLOOD CHOLESTEROL INCREASED
  2. CENTRUM SILVER [Concomitant]
     Route: 065
  3. ACETYLSALICYLIC ACID SRT [Concomitant]
     Route: 065
  4. VITAMINS [Concomitant]

REACTIONS (2)
  - CERVIX CARCINOMA [None]
  - LUNG NEOPLASM MALIGNANT [None]
